FAERS Safety Report 16132267 (Version 1)
Quarter: 2019Q1

REPORT INFORMATION
  Report Type: Spontaneous
  Country: FR (occurrence: FR)
  Receive Date: 20190329
  Receipt Date: 20190329
  Transmission Date: 20190418
  Serious: Yes (Other)
  Sender: FDA-Public Use
  Company Number: FR-AUROBINDO-AUR-APL-2019-016446

PATIENT

DRUGS (1)
  1. CEFPODOXIME [Suspect]
     Active Substance: CEFPODOXIME
     Indication: BRONCHITIS
     Dosage: NON RENSEIGNEE
     Route: 048
     Dates: start: 201703, end: 201703

REACTIONS (3)
  - Urticaria [Recovered/Resolved]
  - Sense of oppression [Recovered/Resolved]
  - Rash [Recovered/Resolved]

NARRATIVE: CASE EVENT DATE: 201703
